FAERS Safety Report 4485322-0 (Version None)
Quarter: 2004Q4

REPORT INFORMATION
  Report Type: 
  Country: None (occurrence: None)
  Receive Date: 20041021
  Receipt Date: 20041006
  Transmission Date: 20050328
  Serious: Yes (Death)
  Sender: FDA-Public Use
  Company Number: 2004UW17845

PATIENT
  Sex: Male

DRUGS (3)
  1. NAROPIN [Suspect]
     Dates: start: 20020814
  2. LIDOCAINE [Suspect]
     Dates: start: 20020814
  3. KENALOG [Suspect]
     Dates: start: 20020814

REACTIONS (6)
  - BACK PAIN [None]
  - CLOSTRIDIAL INFECTION [None]
  - GAS GANGRENE [None]
  - MEDICATION ERROR [None]
  - PHARMACEUTICAL PRODUCT COMPLAINT [None]
  - POST PROCEDURAL PAIN [None]
